FAERS Safety Report 15226587 (Version 2)
Quarter: 2018Q3

REPORT INFORMATION
  Report Type: Spontaneous
  Country: US (occurrence: US)
  Receive Date: 20180801
  Receipt Date: 20180801
  Transmission Date: 20181010
  Serious: Yes (Hospitalization)
  Sender: FDA-Public Use
  Company Number: PHHY2018US052457

PATIENT
  Age: 25 Year
  Sex: Female

DRUGS (2)
  1. RITUXIMAB. [Suspect]
     Active Substance: RITUXIMAB
     Indication: PEMPHIGUS
     Dosage: 6 CYCLE
     Route: 065
  2. CICLOSPORIN [Suspect]
     Active Substance: CYCLOSPORINE
     Indication: PEMPHIGUS
     Route: 065

REACTIONS (12)
  - Bronchiectasis [Unknown]
  - Microcytic anaemia [Unknown]
  - Obliterative bronchiolitis [Unknown]
  - Dyspnoea [Unknown]
  - Respiratory tract infection viral [Unknown]
  - Product use in unapproved indication [Unknown]
  - Small airways disease [Unknown]
  - Hypogammaglobulinaemia [Unknown]
  - Pulmonary hypertension [Unknown]
  - Mycobacterium fortuitum infection [Unknown]
  - Scedosporium infection [Unknown]
  - Respiratory tract infection bacterial [Unknown]
